FAERS Safety Report 7465414-4 (Version None)
Quarter: 2011Q2

REPORT INFORMATION
  Report Type: 
  Country: None (occurrence: None)
  Receive Date: 20110509
  Receipt Date: 20101025
  Transmission Date: 20111010
  Serious: No
  Sender: FDA-Public Use
  Company Number: US-BAUSCH-2010BL006012

PATIENT
  Age: 71 Year
  Sex: Female

DRUGS (3)
  1. LOTEMAX [Suspect]
     Indication: DRY EYE
     Route: 047
     Dates: start: 20101018
  2. LOTEMAX [Suspect]
     Indication: OFF LABEL USE
     Route: 047
     Dates: start: 20101018
  3. REPLENISH PRESERVATIVE FREE EYE DROPS [Concomitant]
     Indication: DRY EYE
     Route: 047

REACTIONS (2)
  - EYE IRRITATION [None]
  - DRUG ADMINISTRATION ERROR [None]
